FAERS Safety Report 12789433 (Version 2)
Quarter: 2017Q1

REPORT INFORMATION
  Report Type: Other
  Country: AT (occurrence: AT)
  Receive Date: 20160928
  Receipt Date: 20170324
  Transmission Date: 20170428
  Serious: Yes (Hospitalization, Other)
  Sender: FDA-Public Use
  Company Number: AT-SHIRE-AT201613243

PATIENT
  Age: 46 Year
  Sex: Male
  Weight: 72 kg

DRUGS (1)
  1. REVESTIVE [Suspect]
     Active Substance: TEDUGLUTIDE
     Indication: SHORT-BOWEL SYNDROME
     Dosage: 0.36 ML, 1X/DAY:QD
     Route: 058
     Dates: start: 20160909

REACTIONS (5)
  - Diarrhoea [Not Recovered/Not Resolved]
  - Biliary colic [Unknown]
  - Abdominal pain lower [Unknown]
  - Device related infection [Unknown]
  - Pyrexia [Not Recovered/Not Resolved]

NARRATIVE: CASE EVENT DATE: 20160915
